FAERS Safety Report 7212453-4 (Version None)
Quarter: 2011Q1

REPORT INFORMATION
  Report Type: 
  Country: None (occurrence: None)
  Receive Date: 20110106
  Receipt Date: 20101231
  Transmission Date: 20110831
  Serious: Yes (Death)
  Sender: FDA-Public Use
  Company Number: US-PFIZER INC-2011000457

PATIENT
  Age: 77 Year
  Sex: Female

DRUGS (8)
  1. DOXAZOSIN MESYLATE [Suspect]
     Dosage: UNK
     Route: 048
  2. SIMVASTATIN [Suspect]
     Dosage: UNK
     Route: 048
  3. HYDROCHLOROTHIAZIDE [Suspect]
     Dosage: UNK
     Route: 048
  4. LISINOPRIL [Suspect]
     Dosage: UNK
     Route: 048
  5. DILTIAZEM [Suspect]
     Dosage: UNK
     Route: 048
  6. LEVOTHYROXINE [Suspect]
     Dosage: UNK
  7. CHLORDIAZEPOXIDE [Suspect]
     Dosage: UNK
  8. VENLAFAXINE HCL [Suspect]
     Dosage: UNK
     Route: 048

REACTIONS (3)
  - RESPIRATORY ARREST [None]
  - CARDIAC ARREST [None]
  - COMPLETED SUICIDE [None]
